FAERS Safety Report 11008468 (Version 1)
Quarter: 2015Q2

REPORT INFORMATION
  Report Type: Spontaneous
  Country: JP (occurrence: JP)
  Receive Date: 20150410
  Receipt Date: 20150410
  Transmission Date: 20150821
  Serious: Yes (Hospitalization)
  Sender: FDA-Public Use
  Company Number: JP-ASTRAZENECA-2015SE23340

PATIENT
  Age: 80 Year
  Sex: Male

DRUGS (4)
  1. FORXIGA [Suspect]
     Active Substance: DAPAGLIFLOZIN
     Indication: DIABETES MELLITUS
     Route: 048
     Dates: start: 201409, end: 201501
  2. FORXIGA [Suspect]
     Active Substance: DAPAGLIFLOZIN
     Indication: DIABETES MELLITUS
     Route: 048
     Dates: start: 201501
  3. GLACTIV [Suspect]
     Active Substance: SITAGLIPTIN
     Dosage: DOSE UNKNOWN
     Route: 048
  4. SEIBULE [Suspect]
     Active Substance: MIGLITOL
     Dosage: DOSE UNKNOWN
     Route: 048

REACTIONS (2)
  - Incorrect dose administered [Unknown]
  - Hypoglycaemia [Unknown]

NARRATIVE: CASE EVENT DATE: 201501
